FAERS Safety Report 4431457-8 (Version None)
Quarter: 2004Q3

REPORT INFORMATION
  Report Type: 
  Country: None (occurrence: None)
  Receive Date: 20040820
  Receipt Date: 20040820
  Transmission Date: 20050211
  Serious: Yes (Life-Threatening, Hospitalization)
  Sender: FDA-Public Use
  Company Number: None

PATIENT
  Age: 67 Year
  Sex: Male
  Weight: 90.72 kg

DRUGS (11)
  1. DROPERIDOL [Suspect]
     Dosage: 1.5MG EVERY 4-6 INTRAVENOUS
     Route: 042
     Dates: start: 20041016, end: 20041016
  2. LORTAB [Concomitant]
  3. COUMADIN [Concomitant]
  4. FOLATEX [Concomitant]
  5. DIDITEK [Concomitant]
  6. COZAAR [Concomitant]
  7. ZOCOR [Concomitant]
  8. DOXAZOSIN [Concomitant]
  9. FLUOXETINE [Concomitant]
  10. ATENOLOL [Concomitant]
  11. LASIX [Concomitant]

REACTIONS (1)
  - VENTRICULAR TACHYCARDIA [None]
